FAERS Safety Report 17871230 (Version 1)
Quarter: 2020Q2

REPORT INFORMATION
  Report Type: Spontaneous
  Country: SA (occurrence: SA)
  Receive Date: 20200608
  Receipt Date: 20200608
  Transmission Date: 20200714
  Serious: Yes (Other)
  Sender: FDA-Public Use
  Company Number: SA-LUPIN PHARMACEUTICALS INC.-2020-02674

PATIENT
  Age: 53 Year
  Sex: Female

DRUGS (7)
  1. METFORMIN [Suspect]
     Active Substance: METFORMIN HYDROCHLORIDE
     Dosage: 500 MILLIGRAM, TID (TID TO START WITH 500 MG DAILY FOR THE FIRST WEEK AND INCREASE WEEKLY TO REACH 1
     Route: 065
  2. INSULIN GLARGINE [Suspect]
     Active Substance: INSULIN GLARGINE
     Indication: DIABETES MELLITUS
     Dosage: 26 UNIT, QD
     Route: 058
  3. INSULIN GLULISINE [Suspect]
     Active Substance: INSULIN GLULISINE
     Indication: DIABETES MELLITUS
     Dosage: 12 UNIT, TID (BEFORE MEALS)
     Route: 058
  4. METFORMIN [Suspect]
     Active Substance: METFORMIN HYDROCHLORIDE
     Indication: DIABETES MELLITUS
     Dosage: 500 MILLIGRAM, QD (TID TO START WITH 500 MG DAILY FOR THE FIRST WEEK AND INCREASE WEEKLY TO REACH 1.
     Route: 065
  5. METHYLPREDNISOLONE. [Suspect]
     Active Substance: METHYLPREDNISOLONE
     Indication: IMMUNE THROMBOCYTOPENIA
     Dosage: 1 MICROGRAM, QD (FOR 5 DAYS)
     Route: 042
  6. PLATELETS [Concomitant]
     Active Substance: HUMAN PLATELET, ALLOGENIC
     Indication: IMMUNE THROMBOCYTOPENIA
     Dosage: UNK
     Route: 051
  7. IMMUNOGLOBULIN I.V [Concomitant]
     Active Substance: HUMAN IMMUNOGLOBULIN G
     Indication: IMMUNE THROMBOCYTOPENIA
     Dosage: UNK
     Route: 042

REACTIONS (5)
  - Diabetic ketoacidosis [Recovered/Resolved]
  - Oral candidiasis [Unknown]
  - Candida infection [Unknown]
  - Condition aggravated [Unknown]
  - Treatment noncompliance [Unknown]
